FAERS Safety Report 4827658-7 (Version None)
Quarter: 2005Q4

REPORT INFORMATION
  Report Type: 
  Country: None (occurrence: None)
  Receive Date: 20051114
  Receipt Date: 20050927
  Transmission Date: 20060501
  Serious: Yes (Death, Hospitalization)
  Sender: FDA-Public Use
  Company Number: US-MERCK-0509USA04417

PATIENT
  Age: 44 Year
  Sex: Male
  Weight: 91 kg

DRUGS (4)
  1. VIOXX [Suspect]
     Indication: GOUT
     Route: 048
     Dates: start: 20010621, end: 20030926
  2. PROCHLORPERAZINE [Concomitant]
     Route: 065
  3. PREDNISONE [Concomitant]
     Route: 065
  4. QUININE [Concomitant]
     Route: 065

REACTIONS (1)
  - MYOCARDIAL INFARCTION [None]
